FAERS Safety Report 8106422-X (Version None)
Quarter: 2012Q1

REPORT INFORMATION
  Report Type: 
  Country: None (occurrence: None)
  Receive Date: 20120202
  Receipt Date: 20120125
  Transmission Date: 20120608
  Serious: Yes (Other)
  Sender: FDA-Public Use
  Company Number: US-US-EMD SERONO, INC.-7071842

PATIENT
  Sex: Female
  Weight: 83 kg

DRUGS (3)
  1. REBIF [Suspect]
     Route: 058
     Dates: start: 20110705
  2. REBIF [Suspect]
     Indication: MULTIPLE SCLEROSIS
     Route: 058
     Dates: start: 20110614
  3. METOPROLOL [Concomitant]
     Dates: start: 20100421

REACTIONS (1)
  - OPTIC NEURITIS [None]
